FAERS Safety Report 17912851 (Version 1)
Quarter: 2020Q2

REPORT INFORMATION
  Report Type: Spontaneous
  Country: GB (occurrence: VN)
  Receive Date: 20200618
  Receipt Date: 20200618
  Transmission Date: 20200714
  Serious: Yes (Other)
  Sender: FDA-Public Use
  Company Number: VN-ASTELLAS-2020US020646

PATIENT
  Age: 58 Year
  Sex: Male

DRUGS (4)
  1. ATEZOLIZUMAB. [Suspect]
     Active Substance: ATEZOLIZUMAB
     Indication: LUNG CANCER METASTATIC
     Route: 065
  2. CARBOPLATIN. [Suspect]
     Active Substance: CARBOPLATIN
     Indication: LUNG CANCER METASTATIC
     Route: 042
  3. ERLOTINIB [Suspect]
     Active Substance: ERLOTINIB
     Indication: LUNG CANCER METASTATIC
     Route: 065
  4. ALIMTA [Suspect]
     Active Substance: PEMETREXED DISODIUM
     Indication: LUNG CANCER METASTATIC
     Route: 042

REACTIONS (7)
  - Muscular weakness [Unknown]
  - Carcinoembryonic antigen increased [Recovered/Resolved]
  - Amnesia [Unknown]
  - Gait disturbance [Unknown]
  - Malignant neoplasm progression [Recovered/Resolved]
  - Headache [Recovered/Resolved]
  - Malignant neoplasm progression [Unknown]

NARRATIVE: CASE EVENT DATE: 201704
